FAERS Safety Report 20650977 (Version 3)
Quarter: 2022Q2

REPORT INFORMATION
  Report Type: Spontaneous
  Country: US (occurrence: US)
  Receive Date: 20220329
  Receipt Date: 20220602
  Transmission Date: 20220721
  Serious: Yes (Hospitalization, Other)
  Sender: FDA-Public Use
  Company Number: US-BRISTOL-MYERS SQUIBB COMPANY-USA-20220304761

PATIENT
  Age: 71 Year
  Sex: Male
  Weight: 92.99 kg

DRUGS (19)
  1. REVLIMID [Suspect]
     Active Substance: LENALIDOMIDE
     Indication: Lymphoma
     Route: 048
     Dates: start: 20220223
  2. REVLIMID [Suspect]
     Active Substance: LENALIDOMIDE
     Indication: Plasma cell myeloma
     Dosage: 27 DAYS ON/7 OFF
     Route: 048
     Dates: start: 20220217
  3. REVLIMID [Suspect]
     Active Substance: LENALIDOMIDE
     Route: 048
     Dates: start: 20220413
  4. REVLIMID [Suspect]
     Active Substance: LENALIDOMIDE
     Route: 048
     Dates: start: 20220311, end: 20220413
  5. REVLIMID [Suspect]
     Active Substance: LENALIDOMIDE
     Dosage: 1*21 DAYS
     Route: 048
     Dates: start: 20210824
  6. ACYCLOVIR [Concomitant]
     Active Substance: ACYCLOVIR
     Indication: Plasma cell myeloma
     Dosage: FREQUENCY NOT PROVIDED
     Route: 048
     Dates: start: 20220209
  7. ASPIRIN [Concomitant]
     Active Substance: ASPIRIN
     Indication: Plasma cell myeloma
     Dosage: ADULT ORAL TABLET FREQUENCY NOT PROVIDED
     Route: 048
     Dates: start: 20220216
  8. BACTRIM DS [Concomitant]
     Active Substance: SULFAMETHOXAZOLE\TRIMETHOPRIM
     Indication: Plasma cell myeloma
     Dosage: 800-160MG FREQUENCY NOT PROVIDED
     Route: 048
     Dates: start: 20220209
  9. DARZALEX FASPRO [Concomitant]
     Active Substance: DARATUMUMAB\HYALURONIDASE-FIHJ
     Indication: Plasma cell myeloma
     Dosage: 1800-30000 SUBCUTANEOUS SOLUTION
     Route: 058
     Dates: start: 20220216
  10. DECADRON [Concomitant]
     Active Substance: DEXAMETHASONE
     Indication: Plasma cell myeloma
     Dosage: FREQUENCY NOT PROVIDED
     Route: 048
     Dates: start: 20220216
  11. FOLIC ACID [Concomitant]
     Active Substance: FOLIC ACID
     Indication: Plasma cell myeloma
     Dosage: FREQUENCY NOT PROVIDED
     Route: 048
     Dates: start: 20220216
  12. LOSARTAN POTASSIUM [Concomitant]
     Active Substance: LOSARTAN POTASSIUM
     Indication: Plasma cell myeloma
     Dosage: FREQUENCY NOT PROVIDED
     Route: 048
     Dates: start: 20220216
  13. METFORMIN HYDROCHLORIDE [Concomitant]
     Active Substance: METFORMIN HYDROCHLORIDE
     Indication: Plasma cell myeloma
     Route: 048
     Dates: start: 20220216
  14. MIRALAX [Concomitant]
     Active Substance: POLYETHYLENE GLYCOL 3350
     Indication: Plasma cell myeloma
     Dosage: ORAL PACKET
     Route: 048
  15. OMEPRAZOLE [Concomitant]
     Active Substance: OMEPRAZOLE
     Indication: Plasma cell myeloma
     Route: 048
     Dates: start: 20220216
  16. VASCEPA [Concomitant]
     Active Substance: ICOSAPENT ETHYL
     Indication: Product used for unknown indication
     Route: 048
     Dates: start: 20220216
  17. SYMBICORT [Concomitant]
     Active Substance: BUDESONIDE\FORMOTEROL FUMARATE DIHYDRATE
     Indication: Product used for unknown indication
     Dosage: 160-4.5
     Route: 055
     Dates: start: 20220216
  18. FUROSEMIDE [Concomitant]
     Active Substance: FUROSEMIDE
     Indication: Product used for unknown indication
     Dosage: 160-4.5
     Route: 048
     Dates: start: 20220414
  19. DOXYCYCLINE HYCLATE [Concomitant]
     Active Substance: DOXYCYCLINE HYCLATE
     Indication: Product used for unknown indication
     Dosage: 160-4.5
     Route: 048
     Dates: start: 20220414

REACTIONS (3)
  - Thrombocytopenia [Unknown]
  - Oedema [Unknown]
  - Thrombosis [Recovered/Resolved]

NARRATIVE: CASE EVENT DATE: 20220302
